FAERS Safety Report 7932007-1 (Version None)
Quarter: 2011Q4

REPORT INFORMATION
  Report Type: 
  Country: None (occurrence: None)
  Receive Date: 20111121
  Receipt Date: 20111108
  Transmission Date: 20120403
  Serious: Yes (Hospitalization, Other)
  Sender: FDA-Public Use
  Company Number: US-ELI_LILLY_AND_COMPANY-US201103005881

PATIENT
  Sex: Female

DRUGS (9)
  1. ATENOLOL [Concomitant]
  2. PREVACID [Concomitant]
     Indication: GASTROOESOPHAGEAL REFLUX DISEASE
  3. SIMVASTATIN [Concomitant]
  4. LEFLUNOMIDE [Concomitant]
  5. FORTEO [Suspect]
     Dosage: 20 UG, QD
  6. CALCIUM [Concomitant]
     Dosage: UNK, BID
  7. FORTEO [Suspect]
     Indication: OSTEOPOROSIS
     Dosage: 20 UG, QD
     Route: 065
     Dates: start: 20101221
  8. VITAMIN D [Concomitant]
     Dosage: UNK, BID
  9. MULTI-VITAMIN [Concomitant]

REACTIONS (3)
  - INJECTION SITE HAEMATOMA [None]
  - CONTUSION [None]
  - GALLBLADDER OPERATION [None]
